FAERS Safety Report 5485238-7 (Version None)
Quarter: 2007Q4

REPORT INFORMATION
  Report Type: 
  Country: None (occurrence: None)
  Receive Date: 20071015
  Receipt Date: 20070831
  Transmission Date: 20080405
  Serious: Yes (Hospitalization, Other)
  Sender: FDA-Public Use
  Company Number: FR-NOVOPROD-267077

PATIENT

DRUGS (1)
  1. NORDITROPIN [Suspect]
     Indication: GROWTH HORMONE DEFICIENCY
     Dosage: 1.6 MG, UNK
     Route: 058
     Dates: start: 20070201

REACTIONS (2)
  - EPIDIDYMAL CYST [None]
  - TESTICULAR TORSION [None]
